FAERS Safety Report 19102024 (Version 1)
Quarter: 2021Q2

REPORT INFORMATION
  Report Type: Spontaneous
  Country: RO (occurrence: RO)
  Receive Date: 20210407
  Receipt Date: 20210407
  Transmission Date: 20210717
  Serious: Yes (Other)
  Sender: FDA-Public Use
  Company Number: RO-ROCHE-2799899

PATIENT
  Age: 72 Year

DRUGS (1)
  1. OBINUTUZUMAB. [Suspect]
     Active Substance: OBINUTUZUMAB
     Indication: CHRONIC LYMPHOCYTIC LEUKAEMIA
     Route: 065

REACTIONS (7)
  - Lymphadenopathy [Unknown]
  - Hepatosplenomegaly [Unknown]
  - Weight control [Unknown]
  - Asthenia [Unknown]
  - Fatigue [Unknown]
  - Night sweats [Unknown]
  - Neutropenia [Unknown]
